FAERS Safety Report 10663212 (Version 1)
Quarter: 2014Q4

REPORT INFORMATION
  Report Type: Spontaneous
  Country: US (occurrence: US)
  Receive Date: 20141218
  Receipt Date: 20141218
  Transmission Date: 20150529
  Serious: No
  Sender: FDA-Public Use
  Company Number: US-GALDERMA-US14003503

PATIENT
  Sex: Female

DRUGS (2)
  1. BARE MINERALS MAKE UP [Concomitant]
     Route: 061
  2. MIRVASO [Suspect]
     Active Substance: BRIMONIDINE TARTRATE
     Indication: ROSACEA
     Dosage: 0.33%
     Route: 061
     Dates: start: 2013

REACTIONS (1)
  - Sticky skin [Not Recovered/Not Resolved]

NARRATIVE: CASE EVENT DATE: 2013
